FAERS Safety Report 12841468 (Version 3)
Quarter: 2016Q4

REPORT INFORMATION
  Report Type: Report from Study
  Country: CA (occurrence: CA)
  Receive Date: 20161012
  Receipt Date: 20161219
  Transmission Date: 20170207
  Serious: Yes (Hospitalization)
  Sender: FDA-Public Use
  Company Number: CA-INCYTE CORPORATION-2016IN004744

PATIENT
  Age: 76 Year
  Sex: Female

DRUGS (3)
  1. ASPIRIN//ACETYLSALICYLIC ACID [Concomitant]
     Active Substance: ASPIRIN
     Indication: PRODUCT USED FOR UNKNOWN INDICATION
     Route: 065
  2. JAKAVI [Suspect]
     Active Substance: RUXOLITINIB
     Indication: THROMBOCYTOPENIA
     Dosage: 15 MG, BID
     Route: 048
     Dates: start: 20160706
  3. EPREX [Concomitant]
     Active Substance: ERYTHROPOIETIN
     Indication: THROMBOCYTOPENIA
     Route: 005

REACTIONS (11)
  - Asthenia [Recovering/Resolving]
  - Dizziness [Unknown]
  - Night sweats [Recovering/Resolving]
  - Chest discomfort [Recovered/Resolved]
  - Feeling abnormal [Unknown]
  - Chest discomfort [Recovered/Resolved]
  - Eating disorder [Recovering/Resolving]
  - Movement disorder [Recovering/Resolving]
  - Chest discomfort [Recovered/Resolved]
  - Haemoglobin decreased [Recovering/Resolving]
  - Discomfort [Recovering/Resolving]

NARRATIVE: CASE EVENT DATE: 20160809
